FAERS Safety Report 6305698-9 (Version None)
Quarter: 2009Q3

REPORT INFORMATION
  Report Type: 
  Country: None (occurrence: None)
  Receive Date: 20090807
  Receipt Date: 20090803
  Transmission Date: 20100115
  Serious: Yes (Hospitalization)
  Sender: FDA-Public Use
  Company Number: PACLITAXEL-JUL01

PATIENT
  Age: 64 Year
  Sex: Female

DRUGS (3)
  1. PACLITAXEL [Suspect]
     Indication: FALLOPIAN TUBE CANCER STAGE III
     Dosage: 135 MG/M2, IV
     Route: 042
  2. CISPLATIN [Suspect]
     Indication: FALLOPIAN TUBE CANCER STAGE III
     Dosage: 100 MG/M2, IP
  3. METOPROLOL [Concomitant]

REACTIONS (8)
  - APHASIA [None]
  - BLOOD PRESSURE INCREASED [None]
  - DISORIENTATION [None]
  - GASTROINTESTINAL SOUNDS ABNORMAL [None]
  - MENTAL STATUS CHANGES [None]
  - NAUSEA [None]
  - REVERSIBLE POSTERIOR LEUKOENCEPHALOPATHY SYNDROME [None]
  - VOMITING [None]
